FAERS Safety Report 13655117 (Version 2)
Quarter: 2017Q2

REPORT INFORMATION
  Report Type: Spontaneous
  Country: US (occurrence: US)
  Receive Date: 20170615
  Receipt Date: 20170629
  Transmission Date: 20170830
  Serious: No
  Sender: FDA-Public Use
  Company Number: US-VERTEX PHARMACEUTICALS-2017-003111

PATIENT
  Age: 6 Year
  Sex: Male

DRUGS (11)
  1. PEDIASURE [Concomitant]
     Active Substance: VITAMINS
     Dosage: 1 DF, TID
     Route: 048
     Dates: start: 20170329
  2. PERTZYE [Concomitant]
     Active Substance: PANCRELIPASE AMYLASE\PANCRELIPASE LIPASE\PANCRELIPASE PROTEASE
     Dosage: 3 DF, TID WITH MEALS AND 1-2 WITH SNACKS
     Route: 048
     Dates: start: 20170315
  3. ORKAMBI [Suspect]
     Active Substance: IVACAFTOR\LUMACAFTOR
     Dosage: UNK
     Route: 048
     Dates: start: 2017, end: 20170515
  4. FLONASE [Concomitant]
     Active Substance: FLUTICASONE PROPIONATE
     Dosage: 1 SPRAY, QD
     Route: 045
     Dates: start: 20160823
  5. PULMOZYME [Concomitant]
     Active Substance: DORNASE ALFA
     Dosage: 1 VIAL, QD MAY INCREASE TO BID WITH INCREASED SYMPTOMS
     Route: 055
     Dates: start: 20161128
  6. ZYRTEC [Concomitant]
     Active Substance: CETIRIZINE HYDROCHLORIDE
     Dosage: 5 ML, DAILY, PRN
     Route: 048
     Dates: start: 20160517
  7. OMEPRAZOLE AND SODIUM BICARBONATE [Concomitant]
     Active Substance: OMEPRAZOLE\SODIUM BICARBONATE
     Dosage: 7.5 ML, BID
     Route: 048
     Dates: start: 20170504
  8. COMPLETE MULTI VIT [Concomitant]
     Dosage: 1 DF, QD
     Route: 048
     Dates: start: 20170302
  9. ORKAMBI [Suspect]
     Active Substance: IVACAFTOR\LUMACAFTOR
     Indication: CYSTIC FIBROSIS
     Dosage: (100/125MG EACH), BID
     Route: 048
     Dates: start: 20170323, end: 2017
  10. PROVENTIL [Concomitant]
     Active Substance: ALBUTEROL
     Dosage: 1 VIAL, PRN WITH AIRWAY CLEARANCE AND EVERY 4 HR, PRN
     Route: 055
     Dates: start: 20170315
  11. SODIUM CHLORIDE. [Concomitant]
     Active Substance: SODIUM CHLORIDE
     Dosage: USE WITH VEST THERAPY, BID. INCREASED TO TID WITH INCREASED RESPIRATORY SYMPTOMS
     Route: 055
     Dates: start: 20170608

REACTIONS (1)
  - Rash maculo-papular [Recovered/Resolved]

NARRATIVE: CASE EVENT DATE: 20170510
